FAERS Safety Report 12071644 (Version 2)
Quarter: 2016Q2

REPORT INFORMATION
  Report Type: Report from Study
  Country: US (occurrence: US)
  Receive Date: 20160212
  Receipt Date: 20160628
  Transmission Date: 20160815
  Serious: Yes (Other)
  Sender: FDA-Public Use
  Company Number: PHEH2016US003240

PATIENT
  Age: 31 Year
  Sex: Female
  Weight: 80.27 kg

DRUGS (6)
  1. VITAMIN D [Concomitant]
     Active Substance: CHOLECALCIFEROL
     Dosage: 5000 U, QD
     Route: 048
  2. VITAMIN D [Concomitant]
     Active Substance: CHOLECALCIFEROL
     Indication: VITAMIN D DEFICIENCY
     Dosage: 2000 U, QD
     Route: 048
  3. ACETAMINOPHEN\HYDROCODONE BITARTRATE [Concomitant]
     Active Substance: ACETAMINOPHEN\HYDROCODONE BITARTRATE
     Indication: PAIN
     Dosage: 1 DF (HYDROCODONE 5MG, ACETAMINOPHEN 325 MG), 3 TIMES DAILY
     Route: 048
  4. NEURONTIN [Concomitant]
     Active Substance: GABAPENTIN
     Indication: PRODUCT USED FOR UNKNOWN INDICATION
     Dosage: 100 MG, 3 TIMES DAILY
     Route: 048
     Dates: start: 20150817, end: 20150925
  5. GILENYA [Suspect]
     Active Substance: FINGOLIMOD HYDROCHLORIDE
     Indication: MULTIPLE SCLEROSIS
     Dosage: 0.5 MG, QD
     Route: 048
     Dates: start: 20150115, end: 20151216
  6. MULTI VITAMIN [Concomitant]
     Active Substance: VITAMINS
     Indication: PRODUCT USED FOR UNKNOWN INDICATION
     Dosage: 1 DF, QD
     Route: 048

REACTIONS (11)
  - Stress [Unknown]
  - Cerebellar ataxia [Unknown]
  - Gait disturbance [Unknown]
  - Postural tremor [Unknown]
  - Depression [Unknown]
  - Central nervous system lesion [Unknown]
  - Pain in extremity [Unknown]
  - Arthralgia [Unknown]
  - Gait spastic [Unknown]
  - Accident [Unknown]
  - Muscle tightness [Unknown]

NARRATIVE: CASE EVENT DATE: 201505
